FAERS Safety Report 8259300-X (Version None)
Quarter: 2012Q2

REPORT INFORMATION
  Report Type: 
  Country: None (occurrence: None)
  Receive Date: 20120404
  Receipt Date: 20120327
  Transmission Date: 20120825
  Serious: Yes (Other)
  Sender: FDA-Public Use
  Company Number: CH-COVIDIEN/TYCO HEALTHCARE/MALLINCKRODT-T201201230

PATIENT
  Sex: Male
  Weight: 68 kg

DRUGS (2)
  1. OPTIRAY 160 [Suspect]
     Indication: COMPUTERISED TOMOGRAM
     Dosage: 100 ML, SINGLE
     Route: 042
     Dates: start: 20120323, end: 20120323
  2. ACETAMINOPHEN [Concomitant]
     Indication: ABDOMINAL PAIN
     Route: 048

REACTIONS (5)
  - NAUSEA [None]
  - DYSPNOEA [None]
  - ERYTHEMA [None]
  - SWOLLEN TONGUE [None]
  - LIP SWELLING [None]
